FAERS Safety Report 25732882 (Version 3)
Quarter: 2025Q3

REPORT INFORMATION
  Report Type: Report from Study
  Country: CN (occurrence: CN)
  Receive Date: 20250828
  Receipt Date: 20250904
  Transmission Date: 20251021
  Serious: Yes (Death, Other)
  Sender: BEIGENE
  Company Number: CN-ROCHE-3469055

PATIENT
  Age: 76 Year
  Weight: 62 kg

DRUGS (142)
  1. BRUKINSA [Suspect]
     Active Substance: ZANUBRUTINIB
     Indication: Diffuse large B-cell lymphoma
     Route: 065
  2. BRUKINSA [Suspect]
     Active Substance: ZANUBRUTINIB
     Route: 065
  3. BRUKINSA [Suspect]
     Active Substance: ZANUBRUTINIB
     Route: 065
  4. BRUKINSA [Suspect]
     Active Substance: ZANUBRUTINIB
     Route: 065
  5. POLATUZUMAB VEDOTIN [Suspect]
     Active Substance: POLATUZUMAB VEDOTIN
     Indication: Diffuse large B-cell lymphoma
     Route: 041
  6. POLATUZUMAB VEDOTIN [Suspect]
     Active Substance: POLATUZUMAB VEDOTIN
  7. LENALIDOMIDE [Suspect]
     Active Substance: LENALIDOMIDE
     Indication: Diffuse large B-cell lymphoma
  8. LENALIDOMIDE [Suspect]
     Active Substance: LENALIDOMIDE
  9. RITUXIMAB [Suspect]
     Active Substance: RITUXIMAB
     Indication: Diffuse large B-cell lymphoma
     Route: 041
  10. RITUXIMAB [Suspect]
     Active Substance: RITUXIMAB
  11. DESLANOSIDE [Concomitant]
     Active Substance: DESLANOSIDE
  12. DESLANOSIDE [Concomitant]
     Active Substance: DESLANOSIDE
  13. DESLANOSIDE [Concomitant]
     Active Substance: DESLANOSIDE
  14. DESLANOSIDE [Concomitant]
     Active Substance: DESLANOSIDE
  15. DESLANOSIDE [Concomitant]
     Active Substance: DESLANOSIDE
  16. DESLANOSIDE [Concomitant]
     Active Substance: DESLANOSIDE
  17. DESLANOSIDE [Concomitant]
     Active Substance: DESLANOSIDE
  18. DESLANOSIDE [Concomitant]
     Active Substance: DESLANOSIDE
  19. FUROSEMIDE [Concomitant]
     Active Substance: FUROSEMIDE
     Indication: Polyuria
  20. FUROSEMIDE [Concomitant]
     Active Substance: FUROSEMIDE
  21. ISOSORBIDE DINITRATE [Concomitant]
     Active Substance: ISOSORBIDE DINITRATE
  22. ISOSORBIDE DINITRATE [Concomitant]
     Active Substance: ISOSORBIDE DINITRATE
  23. AMBROXOL HYDROCHLORIDE [Concomitant]
     Active Substance: AMBROXOL HYDROCHLORIDE
  24. AMBROXOL HYDROCHLORIDE [Concomitant]
     Active Substance: AMBROXOL HYDROCHLORIDE
  25. TRIMETAZIDINE DIHYDROCHLORIDE [Concomitant]
     Active Substance: TRIMETAZIDINE DIHYDROCHLORIDE
  26. TRIMETAZIDINE DIHYDROCHLORIDE [Concomitant]
     Active Substance: TRIMETAZIDINE DIHYDROCHLORIDE
     Route: 048
  27. TRIMETAZIDINE DIHYDROCHLORIDE [Concomitant]
     Active Substance: TRIMETAZIDINE DIHYDROCHLORIDE
     Route: 048
  28. TRIMETAZIDINE DIHYDROCHLORIDE [Concomitant]
     Active Substance: TRIMETAZIDINE DIHYDROCHLORIDE
  29. FEBUXOSTAT [Concomitant]
     Active Substance: FEBUXOSTAT
  30. FEBUXOSTAT [Concomitant]
     Active Substance: FEBUXOSTAT
     Route: 048
  31. FEBUXOSTAT [Concomitant]
     Active Substance: FEBUXOSTAT
     Route: 048
  32. FEBUXOSTAT [Concomitant]
     Active Substance: FEBUXOSTAT
  33. RECOMBINANT HUMAN THROMBOPOIETIN [Concomitant]
     Active Substance: RECOMBINANT HUMAN THROMBOPOIETIN
  34. RECOMBINANT HUMAN THROMBOPOIETIN [Concomitant]
     Active Substance: RECOMBINANT HUMAN THROMBOPOIETIN
     Route: 058
  35. RECOMBINANT HUMAN THROMBOPOIETIN [Concomitant]
     Active Substance: RECOMBINANT HUMAN THROMBOPOIETIN
     Route: 058
  36. RECOMBINANT HUMAN THROMBOPOIETIN [Concomitant]
     Active Substance: RECOMBINANT HUMAN THROMBOPOIETIN
  37. DEXAMETHASONE SODIUM PHOSPHATE [Concomitant]
     Active Substance: DEXAMETHASONE SODIUM PHOSPHATE
  38. DEXAMETHASONE SODIUM PHOSPHATE [Concomitant]
     Active Substance: DEXAMETHASONE SODIUM PHOSPHATE
  39. DEXAMETHASONE SODIUM PHOSPHATE [Concomitant]
     Active Substance: DEXAMETHASONE SODIUM PHOSPHATE
  40. DEXAMETHASONE SODIUM PHOSPHATE [Concomitant]
     Active Substance: DEXAMETHASONE SODIUM PHOSPHATE
  41. SULFAMETHOXAZOLE [Concomitant]
     Active Substance: SULFAMETHOXAZOLE
  42. SULFAMETHOXAZOLE [Concomitant]
     Active Substance: SULFAMETHOXAZOLE
     Route: 048
  43. SULFAMETHOXAZOLE [Concomitant]
     Active Substance: SULFAMETHOXAZOLE
     Route: 048
  44. SULFAMETHOXAZOLE [Concomitant]
     Active Substance: SULFAMETHOXAZOLE
  45. AMIODARONE HYDROCHLORIDE [Concomitant]
     Active Substance: AMIODARONE HYDROCHLORIDE
  46. AMIODARONE HYDROCHLORIDE [Concomitant]
     Active Substance: AMIODARONE HYDROCHLORIDE
  47. AMIODARONE HYDROCHLORIDE [Concomitant]
     Active Substance: AMIODARONE HYDROCHLORIDE
     Route: 041
  48. CEFTAZIDIME [Concomitant]
     Active Substance: CEFTAZIDIME
  49. CEFTAZIDIME [Concomitant]
     Active Substance: CEFTAZIDIME
     Route: 041
  50. CEFTAZIDIME [Concomitant]
     Active Substance: CEFTAZIDIME
  51. CEFTAZIDIME [Concomitant]
     Active Substance: CEFTAZIDIME
     Route: 041
  52. NOREPINEPHRINE BITARTRATE [Concomitant]
     Active Substance: NOREPINEPHRINE BITARTRATE
     Route: 041
  53. NOREPINEPHRINE BITARTRATE [Concomitant]
     Active Substance: NOREPINEPHRINE BITARTRATE
  54. CEFACLOR [Concomitant]
     Active Substance: CEFACLOR
     Route: 048
  55. CEFACLOR [Concomitant]
     Active Substance: CEFACLOR
  56. TORSEMIDE [Concomitant]
     Active Substance: TORSEMIDE
     Route: 041
  57. TORSEMIDE [Concomitant]
     Active Substance: TORSEMIDE
  58. BISOPROLOL FUMARATE [Concomitant]
     Active Substance: BISOPROLOL FUMARATE
     Route: 048
  59. BISOPROLOL FUMARATE [Concomitant]
     Active Substance: BISOPROLOL FUMARATE
  60. GLUTATHIONE [Concomitant]
     Active Substance: GLUTATHIONE
     Route: 041
  61. GLUTATHIONE [Concomitant]
     Active Substance: GLUTATHIONE
  62. ENTECAVIR [Concomitant]
     Active Substance: ENTECAVIR
  63. ENOXAPARIN SODIUM [Concomitant]
     Active Substance: ENOXAPARIN SODIUM
  64. ACETAMINOPHEN [Concomitant]
     Active Substance: ACETAMINOPHEN
  65. ESMOLOL HYDROCHLORIDE [Concomitant]
     Active Substance: ESMOLOL HYDROCHLORIDE
  66. ESMOLOL HYDROCHLORIDE [Concomitant]
     Active Substance: ESMOLOL HYDROCHLORIDE
  67. ESMOLOL HYDROCHLORIDE [Concomitant]
     Active Substance: ESMOLOL HYDROCHLORIDE
  68. ESMOLOL HYDROCHLORIDE [Concomitant]
     Active Substance: ESMOLOL HYDROCHLORIDE
  69. PREDNISONE ACETATE [Concomitant]
     Active Substance: PREDNISONE ACETATE
  70. PREDNISONE ACETATE [Concomitant]
     Active Substance: PREDNISONE ACETATE
     Route: 048
  71. PREDNISONE ACETATE [Concomitant]
     Active Substance: PREDNISONE ACETATE
     Route: 048
  72. PREDNISONE ACETATE [Concomitant]
     Active Substance: PREDNISONE ACETATE
  73. IMIPENEM AND CILASTATIN SODIUM [Concomitant]
     Active Substance: CILASTATIN SODIUM\IMIPENEM
  74. IMIPENEM AND CILASTATIN SODIUM [Concomitant]
     Active Substance: CILASTATIN SODIUM\IMIPENEM
     Route: 041
  75. IMIPENEM AND CILASTATIN SODIUM [Concomitant]
     Active Substance: CILASTATIN SODIUM\IMIPENEM
     Route: 041
  76. IMIPENEM AND CILASTATIN SODIUM [Concomitant]
     Active Substance: CILASTATIN SODIUM\IMIPENEM
  77. AMINO ACIDS [Concomitant]
     Active Substance: AMINO ACIDS
  78. AMINO ACIDS [Concomitant]
     Active Substance: AMINO ACIDS
     Route: 041
  79. AMINO ACIDS [Concomitant]
     Active Substance: AMINO ACIDS
     Route: 041
  80. AMINO ACIDS [Concomitant]
     Active Substance: AMINO ACIDS
  81. METHYLPREDNISOLONE SODIUM SUCCINATE [Concomitant]
     Active Substance: METHYLPREDNISOLONE SODIUM SUCCINATE
  82. METHYLPREDNISOLONE SODIUM SUCCINATE [Concomitant]
     Active Substance: METHYLPREDNISOLONE SODIUM SUCCINATE
     Route: 041
  83. METHYLPREDNISOLONE SODIUM SUCCINATE [Concomitant]
     Active Substance: METHYLPREDNISOLONE SODIUM SUCCINATE
     Route: 041
  84. METHYLPREDNISOLONE SODIUM SUCCINATE [Concomitant]
     Active Substance: METHYLPREDNISOLONE SODIUM SUCCINATE
  85. OMEPRAZOLE [Concomitant]
     Active Substance: OMEPRAZOLE
  86. OMEPRAZOLE [Concomitant]
     Active Substance: OMEPRAZOLE
     Route: 048
  87. OMEPRAZOLE [Concomitant]
     Active Substance: OMEPRAZOLE
     Route: 048
  88. OMEPRAZOLE [Concomitant]
     Active Substance: OMEPRAZOLE
  89. OMEPRAZOLE [Concomitant]
     Active Substance: OMEPRAZOLE
  90. OMEPRAZOLE [Concomitant]
     Active Substance: OMEPRAZOLE
  91. ACETYLCYSTEINE [Concomitant]
     Active Substance: ACETYLCYSTEINE
  92. ACETYLCYSTEINE [Concomitant]
     Active Substance: ACETYLCYSTEINE
     Route: 055
  93. ACETYLCYSTEINE [Concomitant]
     Active Substance: ACETYLCYSTEINE
     Route: 055
  94. ACETYLCYSTEINE [Concomitant]
     Active Substance: ACETYLCYSTEINE
  95. ESOMEPRAZOLE SODIUM [Concomitant]
     Active Substance: ESOMEPRAZOLE SODIUM
  96. ESOMEPRAZOLE SODIUM [Concomitant]
     Active Substance: ESOMEPRAZOLE SODIUM
  97. ESOMEPRAZOLE SODIUM [Concomitant]
     Active Substance: ESOMEPRAZOLE SODIUM
  98. ESOMEPRAZOLE SODIUM [Concomitant]
     Active Substance: ESOMEPRAZOLE SODIUM
  99. LINEZOLID [Concomitant]
     Active Substance: LINEZOLID
  100. LINEZOLID [Concomitant]
     Active Substance: LINEZOLID
     Route: 041
  101. LINEZOLID [Concomitant]
     Active Substance: LINEZOLID
     Route: 041
  102. LINEZOLID [Concomitant]
     Active Substance: LINEZOLID
  103. LEUCOGEN [Concomitant]
     Active Substance: LEUCOGEN
  104. LEUCOGEN [Concomitant]
     Active Substance: LEUCOGEN
     Route: 048
  105. LEUCOGEN [Concomitant]
     Active Substance: LEUCOGEN
     Route: 048
  106. LEUCOGEN [Concomitant]
     Active Substance: LEUCOGEN
  107. VORICONAZOLE [Concomitant]
     Active Substance: VORICONAZOLE
  108. VORICONAZOLE [Concomitant]
     Active Substance: VORICONAZOLE
     Route: 041
  109. VORICONAZOLE [Concomitant]
     Active Substance: VORICONAZOLE
     Route: 041
  110. VORICONAZOLE [Concomitant]
     Active Substance: VORICONAZOLE
  111. SODIUM BICARBONATE [Concomitant]
     Active Substance: SODIUM BICARBONATE
  112. SODIUM BICARBONATE [Concomitant]
     Active Substance: SODIUM BICARBONATE
     Route: 041
  113. SODIUM BICARBONATE [Concomitant]
     Active Substance: SODIUM BICARBONATE
     Route: 041
  114. SODIUM BICARBONATE [Concomitant]
     Active Substance: SODIUM BICARBONATE
  115. PROMETHAZINE HYDROCHLORIDE [Concomitant]
     Active Substance: PROMETHAZINE HYDROCHLORIDE
  116. PROMETHAZINE HYDROCHLORIDE [Concomitant]
     Active Substance: PROMETHAZINE HYDROCHLORIDE
     Route: 030
  117. PROMETHAZINE HYDROCHLORIDE [Concomitant]
     Active Substance: PROMETHAZINE HYDROCHLORIDE
     Route: 030
  118. PROMETHAZINE HYDROCHLORIDE [Concomitant]
     Active Substance: PROMETHAZINE HYDROCHLORIDE
  119. LACTULOSE [Concomitant]
     Active Substance: LACTULOSE
  120. LACTULOSE [Concomitant]
     Active Substance: LACTULOSE
     Route: 048
  121. LACTULOSE [Concomitant]
     Active Substance: LACTULOSE
     Route: 048
  122. LACTULOSE [Concomitant]
     Active Substance: LACTULOSE
  123. RAFUTROMBOPAG OLAMINE [Concomitant]
     Active Substance: RAFUTROMBOPAG OLAMINE
  124. ACETAMINOPHEN [Concomitant]
     Active Substance: ACETAMINOPHEN
  125. ACETAMINOPHEN [Concomitant]
     Active Substance: ACETAMINOPHEN
  126. ACETAMINOPHEN [Concomitant]
     Active Substance: ACETAMINOPHEN
     Route: 048
  127. ACETAMINOPHEN [Concomitant]
     Active Substance: ACETAMINOPHEN
     Route: 048
  128. ACETAMINOPHEN [Concomitant]
     Active Substance: ACETAMINOPHEN
  129. ACETAMINOPHEN [Concomitant]
     Active Substance: ACETAMINOPHEN
  130. ACETAMINOPHEN [Concomitant]
     Active Substance: ACETAMINOPHEN
     Route: 048
  131. ACETAMINOPHEN [Concomitant]
     Active Substance: ACETAMINOPHEN
     Route: 048
  132. CALCIUM CHLORIDE\POTASSIUM CHLORIDE\SODIUM CHLORIDE\SODIUM LACTATE [Concomitant]
     Active Substance: CALCIUM CHLORIDE\POTASSIUM CHLORIDE\SODIUM CHLORIDE\SODIUM LACTATE
  133. CALCIUM CHLORIDE\POTASSIUM CHLORIDE\SODIUM CHLORIDE\SODIUM LACTATE [Concomitant]
     Active Substance: CALCIUM CHLORIDE\POTASSIUM CHLORIDE\SODIUM CHLORIDE\SODIUM LACTATE
     Route: 041
  134. CALCIUM CHLORIDE\POTASSIUM CHLORIDE\SODIUM CHLORIDE\SODIUM LACTATE [Concomitant]
     Active Substance: CALCIUM CHLORIDE\POTASSIUM CHLORIDE\SODIUM CHLORIDE\SODIUM LACTATE
     Route: 041
  135. CALCIUM CHLORIDE\POTASSIUM CHLORIDE\SODIUM CHLORIDE\SODIUM LACTATE [Concomitant]
     Active Substance: CALCIUM CHLORIDE\POTASSIUM CHLORIDE\SODIUM CHLORIDE\SODIUM LACTATE
  136. Mucopolysaccharide polysulfate [Concomitant]
  137. HUMAN IMMUNOGLOBULIN G [Concomitant]
     Active Substance: HUMAN IMMUNOGLOBULIN G
  138. HUMAN IMMUNOGLOBULIN G [Concomitant]
     Active Substance: HUMAN IMMUNOGLOBULIN G
     Route: 041
  139. HUMAN IMMUNOGLOBULIN G [Concomitant]
     Active Substance: HUMAN IMMUNOGLOBULIN G
  140. HUMAN IMMUNOGLOBULIN G [Concomitant]
     Active Substance: HUMAN IMMUNOGLOBULIN G
     Route: 041
  141. HUMAN IMMUNOGLOBULIN G [Concomitant]
     Active Substance: HUMAN IMMUNOGLOBULIN G
  142. HUMAN IMMUNOGLOBULIN G [Concomitant]
     Active Substance: HUMAN IMMUNOGLOBULIN G
     Route: 041

REACTIONS (28)
  - Acute left ventricular failure [Fatal]
  - Supraventricular tachycardia [Not Recovered/Not Resolved]
  - Renal impairment [Unknown]
  - Renal failure [Not Recovered/Not Resolved]
  - Glomerular filtration rate abnormal [Not Recovered/Not Resolved]
  - Anaemia [Not Recovered/Not Resolved]
  - Respiratory failure [Not Recovered/Not Resolved]
  - Lymphocyte count decreased [Not Recovered/Not Resolved]
  - Platelet count decreased [Not Recovered/Not Resolved]
  - Brain natriuretic peptide increased [Not Recovered/Not Resolved]
  - Neutrophil count decreased [Not Recovered/Not Resolved]
  - Neutropenia [Not Recovered/Not Resolved]
  - Atrial fibrillation [Not Recovered/Not Resolved]
  - Cardiac failure congestive [Not Recovered/Not Resolved]
  - Hypochloraemia [Not Recovered/Not Resolved]
  - Aspartate aminotransferase increased [Not Recovered/Not Resolved]
  - Hypophosphataemia [Recovered/Resolved]
  - Alanine aminotransferase increased [Recovered/Resolved]
  - Hypoalbuminaemia [Recovered/Resolved]
  - Pyrexia [Recovered/Resolved]
  - Anaemia [Not Recovered/Not Resolved]
  - Pleural effusion [Not Recovered/Not Resolved]
  - Hypocalcaemia [Not Recovered/Not Resolved]
  - Blood alkaline phosphatase decreased [Not Recovered/Not Resolved]
  - Platelet count increased [Not Recovered/Not Resolved]
  - Hypoproteinaemia [Not Recovered/Not Resolved]
  - White blood cell count decreased [Not Recovered/Not Resolved]
  - Off label use [Unknown]
